FAERS Safety Report 7019067-X (Version None)
Quarter: 2010Q3

REPORT INFORMATION
  Report Type: 
  Country: None (occurrence: None)
  Receive Date: 20100928
  Receipt Date: 20100921
  Transmission Date: 20110219
  Serious: Yes (Other)
  Sender: FDA-Public Use
  Company Number: A0882354A

PATIENT
  Age: 36 Year
  Sex: Female

DRUGS (3)
  1. LAMICTAL [Suspect]
     Indication: BIPOLAR DISORDER
     Dosage: 100MG PER DAY
     Route: 048
     Dates: start: 20100601
  2. PRISTIQ [Concomitant]
  3. METFORMIN [Concomitant]

REACTIONS (5)
  - BACK PAIN [None]
  - GAIT DISTURBANCE [None]
  - MENINGITIS [None]
  - NECK PAIN [None]
  - PERFORMANCE STATUS DECREASED [None]
